FAERS Safety Report 8480401-5 (Version None)
Quarter: 2012Q3

REPORT INFORMATION
  Report Type: 
  Country: None (occurrence: None)
  Receive Date: 20120702
  Receipt Date: 20120622
  Transmission Date: 20120928
  Serious: Yes (Death, Hospitalization)
  Sender: FDA-Public Use
  Company Number: US-ROCHE-1081139

PATIENT
  Sex: Female

DRUGS (2)
  1. ACTEMRA [Suspect]
     Indication: RHEUMATOID ARTHRITIS
     Route: 042
     Dates: start: 20120507
  2. ACTEMRA [Suspect]
     Route: 042
     Dates: start: 20120622

REACTIONS (4)
  - MYOCARDIAL INFARCTION [None]
  - BLOOD PRESSURE IMMEASURABLE [None]
  - PANIC ATTACK [None]
  - DYSPNOEA [None]
